FAERS Safety Report 12394201 (Version 4)
Quarter: 2016Q3

REPORT INFORMATION
  Report Type: Spontaneous
  Country: FR (occurrence: FR)
  Receive Date: 20160523
  Receipt Date: 20160713
  Transmission Date: 20161109
  Serious: Yes (Hospitalization, Other)
  Sender: FDA-Public Use
  Company Number: FR-PFIZER INC-2016267218

PATIENT
  Age: 68 Year
  Sex: Female
  Weight: 50 kg

DRUGS (20)
  1. PREVISCAN [Concomitant]
     Active Substance: FLUINDIONE
     Dosage: 20 MG, UNK
  2. CALCIDOSE [Concomitant]
     Active Substance: CALCIUM CARBONATE
     Dosage: UNK
  3. KARDEGIC [Concomitant]
     Active Substance: ASPIRIN LYSINE
     Dosage: UNK
  4. FORSTEO [Concomitant]
     Active Substance: TERIPARATIDE
     Dosage: 20 MICROGRAMS/80 MICROLITRES (1 DOSAGE FORM,1 D)
     Route: 058
     Dates: start: 20140211
  5. NOVATREX NOS [Suspect]
     Active Substance: AZITHROMYCIN OR METHOTREXATE SODIUM
     Indication: POLYARTERITIS NODOSA
     Dosage: 4 DF, WEEKLY (1 IN 1 W)
     Route: 048
     Dates: start: 2008, end: 20140326
  6. PREDNISONE. [Suspect]
     Active Substance: PREDNISONE
     Indication: POLYARTERITIS NODOSA
     Dosage: 10 MG, DAILY
  7. MABTHERA [Suspect]
     Active Substance: RITUXIMAB
     Indication: POLYARTERITIS NODOSA
     Dosage: 1000 MG, DAY 1 AND DAY 3
     Dates: start: 201310
  8. INEXIUM [Concomitant]
     Active Substance: ESOMEPRAZOLE
     Dosage: UNK
  9. CACIT D3 [Concomitant]
     Active Substance: CALCIUM\CHOLECALCIFEROL
     Dosage: 500 MG, 2X/DAY (IN THE MORNING)
  10. PREDNISONE. [Suspect]
     Active Substance: PREDNISONE
     Dosage: 15 MG, DAILY (MORNING)
  11. DIFFU K [Concomitant]
     Active Substance: POTASSIUM CHLORIDE
     Dosage: UNK
  12. IMETH [Suspect]
     Active Substance: METHOTREXATE SODIUM
     Indication: POLYARTERITIS NODOSA
     Dosage: 2.5 MG, (3 DOSAGE FORM, 1 IN 1 W)
     Route: 048
     Dates: start: 20140326, end: 2014
  13. PREDNISONE. [Suspect]
     Active Substance: PREDNISONE
     Dosage: 13 MG, DAILY
     Dates: start: 20160204
  14. SERESTA [Concomitant]
     Active Substance: OXAZEPAM
     Dosage: UNK
  15. FOLIC ACID. [Concomitant]
     Active Substance: FOLIC ACID
     Dosage: 5 MG, WEEKLY
  16. MABTHERA [Suspect]
     Active Substance: RITUXIMAB
     Dosage: 1 G ONCE EVERY 15 DAYS
     Route: 051
     Dates: start: 20131027, end: 20140521
  17. RABEPRAZOLE [Concomitant]
     Active Substance: RABEPRAZOLE
     Dosage: 20 MG, DAILY
  18. HUMAN INSULIN [Concomitant]
     Active Substance: INSULIN HUMAN
     Dosage: 7 IU, DAILY IN THE MORNING
  19. PREDNISONE. [Suspect]
     Active Substance: PREDNISONE
     Dosage: 40 MG, DAILY
     Route: 048
     Dates: start: 2008
  20. DOLIPRANE [Concomitant]
     Active Substance: ACETAMINOPHEN
     Dosage: UNK

REACTIONS (9)
  - Arthritis bacterial [Unknown]
  - Enterobacter sepsis [Recovered/Resolved]
  - Urosepsis [Recovered/Resolved]
  - Bronchitis [Recovered/Resolved]
  - Product use issue [Unknown]
  - Hypogammaglobulinaemia [Recovered/Resolved]
  - Secondary immunodeficiency [Recovered/Resolved with Sequelae]
  - Immunodeficiency [Unknown]
  - Condition aggravated [Not Recovered/Not Resolved]

NARRATIVE: CASE EVENT DATE: 201402
